FAERS Safety Report 15586604 (Version 6)
Quarter: 2021Q2

REPORT INFORMATION
  Report Type: Spontaneous
  Country: US (occurrence: US)
  Receive Date: 20181105
  Receipt Date: 20210407
  Transmission Date: 20210716
  Serious: Yes (Other)
  Sender: FDA-Public Use
  Company Number: US-PFIZER INC-2018449931

PATIENT
  Age: 79 Year
  Sex: Female
  Weight: 90.25 kg

DRUGS (2)
  1. LYRICA [Suspect]
     Active Substance: PREGABALIN
     Dosage: 225 MG, DAILY (75MG CAPSULES TAKEN BY MOUTH TWICE DAILY: 1 IN THE MORNING, 2 AT NIGHT)
     Dates: start: 201906
  2. LYRICA [Suspect]
     Active Substance: PREGABALIN
     Indication: PAIN IN EXTREMITY
     Dosage: 75 MG, 2X/DAY (2 TIMES A DAY (MORNING AND NIGHT)

REACTIONS (3)
  - Body height decreased [Not Recovered/Not Resolved]
  - Hypoacusis [Unknown]
  - Gait inability [Recovered/Resolved]
